FAERS Safety Report 17227352 (Version 1)
Quarter: 2020Q1

REPORT INFORMATION
  Report Type: Spontaneous
  Country: FR (occurrence: FR)
  Receive Date: 20200103
  Receipt Date: 20200103
  Transmission Date: 20200409
  Serious: Yes (Other)
  Sender: FDA-Public Use
  Company Number: FR-BRISTOL-MYERS SQUIBB COMPANY-BMS-2019-125013

PATIENT
  Age: 81 Year
  Sex: Female
  Weight: 84 kg

DRUGS (2)
  1. ASPIRINE [Suspect]
     Active Substance: ASPIRIN
     Indication: PAIN
     Dosage: 3000 MILLIGRAM
     Route: 048
  2. ELIQUIS [Suspect]
     Active Substance: APIXABAN
     Indication: CEREBROVASCULAR ACCIDENT PROPHYLAXIS
     Dosage: 5 MILLIGRAM
     Route: 048
     Dates: start: 20191114, end: 20191116

REACTIONS (2)
  - Pericardial effusion [Recovered/Resolved]
  - Haemorrhage [Recovered/Resolved]

NARRATIVE: CASE EVENT DATE: 20191115
